FAERS Safety Report 6755740-6 (Version None)
Quarter: 2010Q2

REPORT INFORMATION
  Report Type: 
  Country: None (occurrence: None)
  Receive Date: 20100604
  Receipt Date: 20100525
  Transmission Date: 20101027
  Serious: Yes (Hospitalization)
  Sender: FDA-Public Use
  Company Number: GB-KINGPHARMUSA00001-K201000657

PATIENT
  Age: 71 Year
  Sex: Female

DRUGS (1)
  1. TAPAZOLE [Suspect]
     Dosage: UNK

REACTIONS (6)
  - ADVERSE DRUG REACTION [None]
  - ASTHENIA [None]
  - DRUG TOXICITY [None]
  - JAUNDICE [None]
  - ORAL HERPES [None]
  - THROMBOCYTOPENIA [None]
